FAERS Safety Report 25932404 (Version 1)
Quarter: 2025Q4

REPORT INFORMATION
  Report Type: Spontaneous
  Country: US (occurrence: US)
  Receive Date: 20251016
  Receipt Date: 20251016
  Transmission Date: 20260118
  Serious: Yes (Life-Threatening, Other)
  Sender: ALKEM
  Company Number: None

PATIENT
  Age: 6 Decade
  Sex: Female

DRUGS (8)
  1. ARIPIPRAZOLE [Interacting]
     Active Substance: ARIPIPRAZOLE
     Indication: Hypokalaemia
     Dosage: 5 MILLIGRAM
     Route: 065
  2. ARIPIPRAZOLE [Interacting]
     Active Substance: ARIPIPRAZOLE
     Dosage: 10 MILLIGRAM
     Route: 065
  3. QUETIAPINE FUMARATE [Suspect]
     Active Substance: QUETIAPINE FUMARATE
     Indication: Sedation
     Dosage: 50 MILLIGRAM, ONCE (TOTAL 1 INTERVAL)
     Route: 065
  4. BENZTROPINE [Interacting]
     Active Substance: BENZTROPINE
     Indication: Hypokalaemia
     Dosage: UNK
     Route: 065
  5. PAROXETINE [Interacting]
     Active Substance: PAROXETINE
     Indication: Hypokalaemia
     Dosage: 40 MILLIGRAM, BID
     Route: 065
  6. HALOPERIDOL [Concomitant]
     Active Substance: HALOPERIDOL
     Indication: Parkinsonism
     Dosage: 5 MILLIGRAM, QD
     Route: 065
  7. HALOPERIDOL [Concomitant]
     Active Substance: HALOPERIDOL
     Dosage: UNK (LOW-DOSE)
     Route: 065
  8. LORAZEPAM [Concomitant]
     Active Substance: LORAZEPAM
     Indication: Product used for unknown indication
     Dosage: UNK
     Route: 042

REACTIONS (9)
  - Hypoxia [Unknown]
  - Serotonin syndrome [Unknown]
  - Drug interaction [Unknown]
  - Hypotension [Recovered/Resolved]
  - Anaemia [Recovered/Resolved]
  - Hypomagnesaemia [Recovered/Resolved]
  - Motor dysfunction [Unknown]
  - Metabolic acidosis [Recovered/Resolved]
  - Unmasking of previously unidentified disease [Unknown]
